FAERS Safety Report 7655012-1 (Version None)
Quarter: 2011Q3

REPORT INFORMATION
  Report Type: 
  Country: None (occurrence: None)
  Receive Date: 20110728
  Receipt Date: 20110712
  Transmission Date: 20111222
  Serious: Yes (Other)
  Sender: FDA-Public Use
  Company Number: 2011AP001176

PATIENT
  Age: 43 Year
  Sex: Male

DRUGS (11)
  1. PERINDOPRIL ERBUMINE [Suspect]
     Indication: HYPERTENSION
     Dates: start: 20080101
  2. TENOFOVIR DISOPROXIL FUMARATE [Concomitant]
  3. CYCLOPHOSPHAMIDE [Concomitant]
  4. RALTEGRAVIR (RALTEGRAVIR) [Concomitant]
  5. MARAVIROC (MARAVIROC) [Concomitant]
  6. ETOPOSIDE [Concomitant]
  7. DOXORUBICIN HCL [Concomitant]
  8. DARUNAVIR HYDRATE [Suspect]
     Indication: HIV INFECTION
     Dosage: 800 MG;QD
     Dates: start: 20070101
  9. EMTRICITABINE [Concomitant]
  10. IRBESARTAN (IRBESARTAN) [Concomitant]
  11. RITONAVIR [Suspect]
     Indication: HIV INFECTION
     Dosage: 100 MG;QD
     Dates: start: 20070101

REACTIONS (12)
  - DRUG LEVEL INCREASED [None]
  - RENAL IMPAIRMENT [None]
  - DRUG INTERACTION [None]
  - BLOOD CHOLESTEROL INCREASED [None]
  - BLOOD PRESSURE INADEQUATELY CONTROLLED [None]
  - HEADACHE [None]
  - BLOOD CREATININE INCREASED [None]
  - BLOOD UREA INCREASED [None]
  - HYPOTENSION [None]
  - GLOMERULAR FILTRATION RATE DECREASED [None]
  - TOXICITY TO VARIOUS AGENTS [None]
  - MIGRAINE [None]
